FAERS Safety Report 5499975-1 (Version None)
Quarter: 2007Q4

REPORT INFORMATION
  Report Type: 
  Country: None (occurrence: None)
  Receive Date: 20071026
  Receipt Date: 20071017
  Transmission Date: 20080405
  Serious: Yes (Other)
  Sender: FDA-Public Use
  Company Number: US-PFIZER INC-2007089100

PATIENT
  Sex: Male

DRUGS (8)
  1. DETROL LA [Suspect]
  2. LASIX [Concomitant]
  3. NEXIUM [Concomitant]
  4. TAMSULOSIN HYDROCHLORIDE [Concomitant]
  5. COREG [Concomitant]
  6. VALSARTAN [Concomitant]
  7. VYTORIN [Concomitant]
  8. ACETYLSALICYLIC ACID SRT [Concomitant]

REACTIONS (2)
  - BLADDER CANCER [None]
  - POLLAKIURIA [None]
